FAERS Safety Report 5969027-2 (Version None)
Quarter: 2008Q4

REPORT INFORMATION
  Report Type: 
  Country: None (occurrence: None)
  Receive Date: 20081119
  Receipt Date: 20080829
  Transmission Date: 20090506
  Serious: No
  Sender: FDA-Public Use
  Company Number: WAES 0809USA00042

PATIENT
  Age: 53 Year
  Sex: Female

DRUGS (6)
  1. JANUVIA [Suspect]
     Indication: DIABETES MELLITUS
     Dosage: 100 MG/DAILY/PO ; DAILY/PO
     Route: 048
     Dates: start: 20060101
  2. AMBIEN CR [Concomitant]
  3. TOPROL-XL [Concomitant]
  4. VALIUM [Concomitant]
  5. WELLBUTRIN XL [Concomitant]
  6. GLIMEPIRIDE [Concomitant]

REACTIONS (5)
  - ANXIETY [None]
  - BLOOD GLUCOSE INCREASED [None]
  - DRUG INEFFECTIVE [None]
  - HYPERHIDROSIS [None]
  - WRONG TECHNIQUE IN DRUG USAGE PROCESS [None]
